FAERS Safety Report 19074371 (Version 6)
Quarter: 2021Q3

REPORT INFORMATION
  Report Type: Report from Study
  Country: US (occurrence: US)
  Receive Date: 20210330
  Receipt Date: 20210716
  Transmission Date: 20211014
  Serious: Yes (Death, Hospitalization, Disabling, Other)
  Sender: FDA-Public Use
  Company Number: NVSC2021US065337

PATIENT
  Age: 59 Year
  Sex: Male
  Weight: 126.1 kg

DRUGS (4)
  1. ENTRESTO [Suspect]
     Active Substance: SACUBITRIL\VALSARTAN
     Dosage: 1 DF, BID  (97/103 MG)
     Route: 048
  2. ENTRESTO [Suspect]
     Active Substance: SACUBITRIL\VALSARTAN
     Indication: CARDIAC FAILURE
     Dosage: UNK UNK, UNKNOWN
     Route: 048
     Dates: start: 20200101
  3. AMIODARONE [Concomitant]
     Active Substance: AMIODARONE
     Indication: PRODUCT USED FOR UNKNOWN INDICATION
     Dosage: UNK
     Route: 065
  4. WATER PILLS [Concomitant]
     Active Substance: UNSPECIFIED INGREDIENT
     Indication: PRODUCT USED FOR UNKNOWN INDICATION
     Dosage: UNK
     Route: 065

REACTIONS (9)
  - Furuncle [Unknown]
  - Weight fluctuation [Unknown]
  - Scrotal abscess [Recovered/Resolved]
  - Arrhythmia [Unknown]
  - Cerebrovascular accident [Fatal]
  - Unevaluable event [Unknown]
  - Dyspnoea [Recovering/Resolving]
  - Cardiac flutter [Recovering/Resolving]
  - Weight decreased [Unknown]

NARRATIVE: CASE EVENT DATE: 2020
